FAERS Safety Report 15923552 (Version 2)
Quarter: 2019Q2

REPORT INFORMATION
  Report Type: Spontaneous
  Country: NL (occurrence: NL)
  Receive Date: 20190206
  Receipt Date: 20190614
  Transmission Date: 20190711
  Serious: Yes (Life-Threatening, Hospitalization, Other)
  Sender: FDA-Public Use
  Company Number: NL-ACCORD-104301

PATIENT
  Age: 51 Year
  Sex: Female

DRUGS (2)
  1. INDAPAMIDE/PERINDOPRIL [Suspect]
     Active Substance: INDAPAMIDE\PERINDOPRIL
     Dosage: 4/1.25 MG; 80 TABLETS
     Route: 048
  2. AMLODIPINE [Suspect]
     Active Substance: AMLODIPINE BESYLATE
     Dosage: 30 TABLETS OF AMLODIPINE 5MG
     Route: 048

REACTIONS (7)
  - Distributive shock [Recovering/Resolving]
  - Suicide attempt [Unknown]
  - Metabolic acidosis [Recovering/Resolving]
  - Cardiogenic shock [Recovering/Resolving]
  - Anuria [Recovering/Resolving]
  - Toxicity to various agents [Unknown]
  - Intentional overdose [Unknown]
